FAERS Safety Report 16271352 (Version 1)
Quarter: 2019Q2

REPORT INFORMATION
  Report Type: Spontaneous
  Country: US (occurrence: US)
  Receive Date: 20190503
  Receipt Date: 20190503
  Transmission Date: 20190711
  Serious: No
  Sender: FDA-Public Use
  Company Number: US-ASTRAZENECA-2019SE53188

PATIENT
  Age: 529 Month
  Sex: Female
  Weight: 83.9 kg

DRUGS (6)
  1. AMLODIPINE [Concomitant]
     Active Substance: AMLODIPINE BESYLATE
     Indication: HYPERTENSION
     Route: 048
  2. AMITRIPTYLINE [Concomitant]
     Active Substance: AMITRIPTYLINE
     Indication: HEADACHE
     Route: 048
     Dates: start: 2005
  3. FASENRA [Suspect]
     Active Substance: BENRALIZUMAB
     Indication: ASTHMA
     Dosage: EVERY FOUR WEEKS
     Route: 058
     Dates: start: 20190103
  4. FASENRA [Suspect]
     Active Substance: BENRALIZUMAB
     Indication: ASTHMA
     Dosage: EVERY EIGHT WEEKS
     Route: 058
  5. BREO ELLIPTA [Concomitant]
     Active Substance: FLUTICASONE FUROATE\VILANTEROL TRIFENATATE
     Indication: ASTHMA
     Route: 055
     Dates: start: 2017
  6. EXCEDRIN [Concomitant]
     Active Substance: ACETAMINOPHEN\ASPIRIN\CAFFEINE
     Indication: TENSION HEADACHE
     Dosage: AS REQUIRED
     Route: 048
     Dates: start: 2005

REACTIONS (4)
  - Limb injury [Unknown]
  - Weight increased [Unknown]
  - Headache [Unknown]
  - Sluggishness [Unknown]

NARRATIVE: CASE EVENT DATE: 2019
